FAERS Safety Report 6205520-5 (Version None)
Quarter: 2009Q2

REPORT INFORMATION
  Report Type: 
  Country: None (occurrence: None)
  Receive Date: 20090527
  Receipt Date: 20090327
  Transmission Date: 20091009
  Serious: No
  Sender: FDA-Public Use
  Company Number: US-ABBOTT-09P-163-0565137-00

PATIENT
  Sex: Female
  Weight: 54.48 kg

DRUGS (4)
  1. SIMCOR [Suspect]
     Indication: CARDIAC DISORDER
     Route: 048
     Dates: start: 20090325
  2. WELLBUTRIN [Concomitant]
     Indication: DRUG USE FOR UNKNOWN INDICATION
  3. STRATTERA [Concomitant]
     Indication: DRUG USE FOR UNKNOWN INDICATION
  4. THYROID TAB [Concomitant]
     Indication: HYPOTHYROIDISM

REACTIONS (3)
  - ABDOMINAL DISCOMFORT [None]
  - FEELING ABNORMAL [None]
  - MIDDLE INSOMNIA [None]
